FAERS Safety Report 24959017 (Version 5)
Quarter: 2025Q1

REPORT INFORMATION
  Report Type: Spontaneous
  Country: KR (occurrence: KR)
  Receive Date: 20250212
  Receipt Date: 20250327
  Transmission Date: 20250409
  Serious: Yes (Hospitalization, Other)
  Sender: CELLTRION
  Company Number: KR-CELLTRION INC.-2024KR006314

PATIENT

DRUGS (247)
  1. INFLIXIMAB [Suspect]
     Active Substance: INFLIXIMAB
     Indication: Crohn^s disease
     Route: 058
     Dates: start: 20231016, end: 20240102
  2. INFLIXIMAB [Suspect]
     Active Substance: INFLIXIMAB
     Route: 058
     Dates: start: 20231016, end: 20240209
  3. USTEKINUMAB [Suspect]
     Active Substance: USTEKINUMAB
     Indication: Crohn^s disease
     Dates: start: 20240217
  4. PROPOFOL [Concomitant]
     Active Substance: PROPOFOL
     Dates: start: 20240105, end: 20240105
  5. PROPOFOL [Concomitant]
     Active Substance: PROPOFOL
     Dates: start: 20250205, end: 20250205
  6. AMINO ACIDS\DEXTROSE\ELECTROLYTES NOS\SOYBEAN OIL [Concomitant]
     Active Substance: AMINO ACIDS\DEXTROSE\ELECTROLYTES NOS\SOYBEAN OIL
     Dates: start: 20240104, end: 20240111
  7. AMINO ACIDS\DEXTROSE\ELECTROLYTES NOS\SOYBEAN OIL [Concomitant]
     Active Substance: AMINO ACIDS\DEXTROSE\ELECTROLYTES NOS\SOYBEAN OIL
     Dates: start: 20240106, end: 20240111
  8. AMINO ACIDS\DEXTROSE\ELECTROLYTES NOS\SOYBEAN OIL [Concomitant]
     Active Substance: AMINO ACIDS\DEXTROSE\ELECTROLYTES NOS\SOYBEAN OIL
     Dates: start: 20240107, end: 20240111
  9. AMINO ACIDS\DEXTROSE\ELECTROLYTES NOS\SOYBEAN OIL [Concomitant]
     Active Substance: AMINO ACIDS\DEXTROSE\ELECTROLYTES NOS\SOYBEAN OIL
     Dates: start: 20240108, end: 20240111
  10. AMINO ACIDS\DEXTROSE\ELECTROLYTES NOS\SOYBEAN OIL [Concomitant]
     Active Substance: AMINO ACIDS\DEXTROSE\ELECTROLYTES NOS\SOYBEAN OIL
     Dates: start: 20240109, end: 20240111
  11. AMINO ACIDS\DEXTROSE\ELECTROLYTES NOS\SOYBEAN OIL [Concomitant]
     Active Substance: AMINO ACIDS\DEXTROSE\ELECTROLYTES NOS\SOYBEAN OIL
     Dates: start: 20240110, end: 20240111
  12. AMINO ACIDS\DEXTROSE\ELECTROLYTES NOS\SOYBEAN OIL [Concomitant]
     Active Substance: AMINO ACIDS\DEXTROSE\ELECTROLYTES NOS\SOYBEAN OIL
     Dates: start: 20240111, end: 20240111
  13. AMINO ACIDS\DEXTROSE\ELECTROLYTES NOS\SOYBEAN OIL [Concomitant]
     Active Substance: AMINO ACIDS\DEXTROSE\ELECTROLYTES NOS\SOYBEAN OIL
     Dates: start: 20250203, end: 20250204
  14. AMINO ACIDS\DEXTROSE\ELECTROLYTES NOS\SOYBEAN OIL [Concomitant]
     Active Substance: AMINO ACIDS\DEXTROSE\ELECTROLYTES NOS\SOYBEAN OIL
     Dates: start: 20250204, end: 20250204
  15. AMINO ACIDS\DEXTROSE\ELECTROLYTES NOS\SOYBEAN OIL [Concomitant]
     Active Substance: AMINO ACIDS\DEXTROSE\ELECTROLYTES NOS\SOYBEAN OIL
     Dates: start: 20250305, end: 20250306
  16. AMINO ACIDS\DEXTROSE\ELECTROLYTES NOS\SOYBEAN OIL [Concomitant]
     Active Substance: AMINO ACIDS\DEXTROSE\ELECTROLYTES NOS\SOYBEAN OIL
     Dates: start: 20250305, end: 20250305
  17. AZATHIOPRINE [Concomitant]
     Active Substance: AZATHIOPRINE
     Indication: Crohn^s disease
     Route: 048
     Dates: start: 20211002
  18. AZATHIOPRINE [Concomitant]
     Active Substance: AZATHIOPRINE
     Dates: start: 20240106, end: 20240111
  19. AZATHIOPRINE [Concomitant]
     Active Substance: AZATHIOPRINE
     Dates: start: 20240107, end: 20240111
  20. AZATHIOPRINE [Concomitant]
     Active Substance: AZATHIOPRINE
     Dates: start: 20240108, end: 20240111
  21. AZATHIOPRINE [Concomitant]
     Active Substance: AZATHIOPRINE
     Dates: start: 20240109, end: 20240111
  22. AZATHIOPRINE [Concomitant]
     Active Substance: AZATHIOPRINE
     Dates: start: 20240110, end: 20240111
  23. AZATHIOPRINE [Concomitant]
     Active Substance: AZATHIOPRINE
     Dates: start: 20240111, end: 20240111
  24. AZATHIOPRINE [Concomitant]
     Active Substance: AZATHIOPRINE
     Dates: start: 20240216, end: 20240216
  25. AZATHIOPRINE [Concomitant]
     Active Substance: AZATHIOPRINE
     Dates: start: 20250203, end: 20250203
  26. BROPIUM [Concomitant]
     Dates: start: 20240105, end: 20240105
  27. CALCIUM CARBONATE\CHOLECALCIFEROL [Concomitant]
     Active Substance: CALCIUM CARBONATE\CHOLECALCIFEROL
     Dates: start: 20240111, end: 20240111
  28. CALCIUM CARBONATE\CHOLECALCIFEROL [Concomitant]
     Active Substance: CALCIUM CARBONATE\CHOLECALCIFEROL
     Dates: start: 20240112, end: 20240123
  29. ENCOVER [Concomitant]
     Dates: start: 20240109, end: 20240112
  30. ENCOVER [Concomitant]
     Dates: start: 20240111, end: 20240112
  31. ENCOVER [Concomitant]
     Dates: start: 20240112, end: 20240112
  32. ENCOVER [Concomitant]
     Dates: start: 20240112, end: 20240125
  33. ESOMEPRAZOLE [Concomitant]
     Active Substance: ESOMEPRAZOLE
     Dates: start: 20240111, end: 20240111
  34. ESOMEPRAZOLE [Concomitant]
     Active Substance: ESOMEPRAZOLE
     Dates: start: 20240112, end: 20240123
  35. ESOMEPRAZOLE [Concomitant]
     Active Substance: ESOMEPRAZOLE
     Dates: start: 20240111
  36. NEXIUM I.V. [Concomitant]
     Active Substance: ESOMEPRAZOLE SODIUM
     Dates: start: 20240105, end: 20240110
  37. NEXIUM I.V. [Concomitant]
     Active Substance: ESOMEPRAZOLE SODIUM
     Dates: start: 20240106, end: 20240110
  38. NEXIUM I.V. [Concomitant]
     Active Substance: ESOMEPRAZOLE SODIUM
     Dates: start: 20240107, end: 20240110
  39. NEXIUM I.V. [Concomitant]
     Active Substance: ESOMEPRAZOLE SODIUM
     Dates: start: 20240108, end: 20240110
  40. NEXIUM I.V. [Concomitant]
     Active Substance: ESOMEPRAZOLE SODIUM
     Dates: start: 20240109, end: 20240110
  41. NEXIUM I.V. [Concomitant]
     Active Substance: ESOMEPRAZOLE SODIUM
     Dates: start: 20240110, end: 20240110
  42. NEXIUM I.V. [Concomitant]
     Active Substance: ESOMEPRAZOLE SODIUM
     Dates: start: 20250204, end: 20250210
  43. NEXIUM I.V. [Concomitant]
     Active Substance: ESOMEPRAZOLE SODIUM
     Dates: start: 20250205, end: 20250210
  44. NEXIUM I.V. [Concomitant]
     Active Substance: ESOMEPRAZOLE SODIUM
     Dates: start: 20250206, end: 20250210
  45. NEXIUM I.V. [Concomitant]
     Active Substance: ESOMEPRAZOLE SODIUM
     Dates: start: 20250207, end: 20250210
  46. NEXIUM I.V. [Concomitant]
     Active Substance: ESOMEPRAZOLE SODIUM
     Dates: start: 20250208, end: 20250210
  47. NEXIUM I.V. [Concomitant]
     Active Substance: ESOMEPRAZOLE SODIUM
     Dates: start: 20250209, end: 20250210
  48. NEXIUM I.V. [Concomitant]
     Active Substance: ESOMEPRAZOLE SODIUM
     Dates: start: 20250210, end: 20250210
  49. NEXIUM I.V. [Concomitant]
     Active Substance: ESOMEPRAZOLE SODIUM
     Dates: start: 20250304, end: 20250305
  50. NEXIUM I.V. [Concomitant]
     Active Substance: ESOMEPRAZOLE SODIUM
     Dates: start: 20250305, end: 20250305
  51. METRONIDAZOLE [Concomitant]
     Active Substance: METRONIDAZOLE
     Dates: start: 20240105, end: 20240110
  52. METRONIDAZOLE [Concomitant]
     Active Substance: METRONIDAZOLE
     Dates: start: 20240106, end: 20240110
  53. METRONIDAZOLE [Concomitant]
     Active Substance: METRONIDAZOLE
     Dates: start: 20240107, end: 20240110
  54. METRONIDAZOLE [Concomitant]
     Active Substance: METRONIDAZOLE
     Dates: start: 20240108, end: 20240110
  55. METRONIDAZOLE [Concomitant]
     Active Substance: METRONIDAZOLE
     Dates: start: 20240109, end: 20240110
  56. METRONIDAZOLE [Concomitant]
     Active Substance: METRONIDAZOLE
     Dates: start: 20240110, end: 20240110
  57. MEDISOLU [METHYLPREDNISOLONE] [Concomitant]
     Dates: start: 20240105, end: 20240110
  58. MEDISOLU [METHYLPREDNISOLONE] [Concomitant]
     Dates: start: 20240106, end: 20240110
  59. MEDISOLU [METHYLPREDNISOLONE] [Concomitant]
     Dates: start: 20240107, end: 20240110
  60. MEDISOLU [METHYLPREDNISOLONE] [Concomitant]
     Dates: start: 20240108, end: 20240110
  61. MEDISOLU [METHYLPREDNISOLONE] [Concomitant]
     Dates: start: 20240109, end: 20240110
  62. MEDISOLU [METHYLPREDNISOLONE] [Concomitant]
     Dates: start: 20240110, end: 20240110
  63. PREDNISOLONE [Concomitant]
     Active Substance: PREDNISOLONE
     Dates: start: 20240111, end: 20240111
  64. PREDNISOLONE [Concomitant]
     Active Substance: PREDNISOLONE
     Route: 048
     Dates: start: 20240111, end: 20240111
  65. PREDNISOLONE [Concomitant]
     Active Substance: PREDNISOLONE
     Route: 048
     Dates: start: 20240111, end: 20240116
  66. PREDNISOLONE [Concomitant]
     Active Substance: PREDNISOLONE
     Dates: start: 20240112, end: 20240130
  67. PREDNISOLONE [Concomitant]
     Active Substance: PREDNISOLONE
     Route: 048
     Dates: start: 20240117, end: 20240123
  68. MIDAZOLAM [Concomitant]
     Active Substance: MIDAZOLAM
     Dates: start: 20240105, end: 20240105
  69. SODIUM CHLORIDE [Concomitant]
     Active Substance: SODIUM CHLORIDE
     Dates: start: 20240105, end: 20240110
  70. SODIUM CHLORIDE [Concomitant]
     Active Substance: SODIUM CHLORIDE
     Dates: start: 20240106, end: 20240110
  71. SODIUM CHLORIDE [Concomitant]
     Active Substance: SODIUM CHLORIDE
     Dates: start: 20240107, end: 20240110
  72. SODIUM CHLORIDE [Concomitant]
     Active Substance: SODIUM CHLORIDE
     Dates: start: 20240108, end: 20240110
  73. SODIUM CHLORIDE [Concomitant]
     Active Substance: SODIUM CHLORIDE
     Dates: start: 20240109, end: 20240110
  74. SODIUM CHLORIDE [Concomitant]
     Active Substance: SODIUM CHLORIDE
     Dates: start: 20240110, end: 20240110
  75. SODIUM CHLORIDE [Concomitant]
     Active Substance: SODIUM CHLORIDE
     Dates: start: 20240105, end: 20240111
  76. SODIUM CHLORIDE [Concomitant]
     Active Substance: SODIUM CHLORIDE
     Dates: start: 20240106, end: 20240111
  77. SODIUM CHLORIDE [Concomitant]
     Active Substance: SODIUM CHLORIDE
     Dates: start: 20240107, end: 20240111
  78. SODIUM CHLORIDE [Concomitant]
     Active Substance: SODIUM CHLORIDE
     Dates: start: 20240108, end: 20240111
  79. SODIUM CHLORIDE [Concomitant]
     Active Substance: SODIUM CHLORIDE
     Dates: start: 20240109, end: 20240111
  80. SODIUM CHLORIDE [Concomitant]
     Active Substance: SODIUM CHLORIDE
     Dates: start: 20240110, end: 20240111
  81. SODIUM CHLORIDE [Concomitant]
     Active Substance: SODIUM CHLORIDE
     Dates: start: 20240111, end: 20240111
  82. ORAFANG [Concomitant]
     Dates: start: 20240105, end: 20240105
  83. CEFTRIAXONE [Concomitant]
     Active Substance: CEFTRIAXONE
     Dates: start: 20240105, end: 20240105
  84. PINE INJ. [Concomitant]
     Dates: start: 20250205, end: 20250205
  85. DEXTROSE [Concomitant]
     Active Substance: DEXTROSE MONOHYDRATE
     Dates: start: 20250203, end: 20250205
  86. DEXTROSE [Concomitant]
     Active Substance: DEXTROSE MONOHYDRATE
     Dates: start: 20250205, end: 20250205
  87. LIDOCAINE HYDROCHLORIDE [Concomitant]
     Active Substance: LIDOCAINE HYDROCHLORIDE
     Dates: start: 20250213, end: 20250213
  88. LIDOCAINE HYDROCHLORIDE [Concomitant]
     Active Substance: LIDOCAINE HYDROCHLORIDE
     Dates: start: 20250204, end: 20250213
  89. LIDOCAINE HYDROCHLORIDE [Concomitant]
     Active Substance: LIDOCAINE HYDROCHLORIDE
     Dates: start: 20250213, end: 20250213
  90. LIDOCAINE HYDROCHLORIDE [Concomitant]
     Active Substance: LIDOCAINE HYDROCHLORIDE
     Dates: start: 20250304, end: 20250304
  91. ROPIVA [Concomitant]
     Dates: start: 20250205, end: 20250205
  92. TYLENOL 8HR [Concomitant]
     Active Substance: ACETAMINOPHEN
     Dates: start: 20250214, end: 20250217
  93. TYLENOL 8HR [Concomitant]
     Active Substance: ACETAMINOPHEN
     Dates: start: 20250215, end: 20250217
  94. TYLENOL 8HR [Concomitant]
     Active Substance: ACETAMINOPHEN
     Dates: start: 20250216, end: 20250217
  95. TYLENOL 8HR [Concomitant]
     Active Substance: ACETAMINOPHEN
     Dates: start: 20250217, end: 20250217
  96. TYLENOL 8HR [Concomitant]
     Active Substance: ACETAMINOPHEN
     Dates: start: 20250220, end: 20250222
  97. TYLENOL 8HR [Concomitant]
     Active Substance: ACETAMINOPHEN
     Dates: start: 20250218, end: 20250219
  98. TYLENOL 8HR [Concomitant]
     Active Substance: ACETAMINOPHEN
     Dates: start: 20250219, end: 20250219
  99. HEPATAMINE [ARGININE;BETA-ALANINE;CYSTEINE HYDROCHLORIDE;GLYCINE;HISTI [Concomitant]
     Dates: start: 20250215, end: 20250217
  100. HEPATAMINE [ARGININE;BETA-ALANINE;CYSTEINE HYDROCHLORIDE;GLYCINE;HISTI [Concomitant]
     Dates: start: 20250216, end: 20250217
  101. HEPATAMINE [ARGININE;BETA-ALANINE;CYSTEINE HYDROCHLORIDE;GLYCINE;HISTI [Concomitant]
     Dates: start: 20250217, end: 20250217
  102. HEPATAMINE [ARGININE;BETA-ALANINE;CYSTEINE HYDROCHLORIDE;GLYCINE;HISTI [Concomitant]
     Dates: start: 20250218, end: 20250219
  103. HEPATAMINE [ARGININE;BETA-ALANINE;CYSTEINE HYDROCHLORIDE;GLYCINE;HISTI [Concomitant]
     Dates: start: 20250219, end: 20250219
  104. OLIMEL PERI N4E [Concomitant]
     Dates: start: 20250205, end: 20250205
  105. OLIMEL PERI N4E [Concomitant]
     Dates: start: 20250304, end: 20250306
  106. OLIMEL PERI N4E [Concomitant]
     Dates: start: 20250310, end: 20250310
  107. OLIMEL PERI N4E [Concomitant]
     Dates: start: 20250309, end: 20250310
  108. OLIMEL PERI N4E [Concomitant]
     Dates: start: 20250308, end: 20250310
  109. OLIMEL PERI N4E [Concomitant]
     Dates: start: 20250307, end: 20250310
  110. OLIMEL PERI N4E [Concomitant]
     Dates: start: 20250306, end: 20250310
  111. OLIMEL PERI N4E [Concomitant]
     Dates: start: 20250304, end: 20250310
  112. AMINO ACIDS\DEXTROSE\ELECTROLYTES NOS\SOYBEAN OIL [Concomitant]
     Active Substance: AMINO ACIDS\DEXTROSE\ELECTROLYTES NOS\SOYBEAN OIL
     Dates: start: 20250206, end: 20250213
  113. AMINO ACIDS\DEXTROSE\ELECTROLYTES NOS\SOYBEAN OIL [Concomitant]
     Active Substance: AMINO ACIDS\DEXTROSE\ELECTROLYTES NOS\SOYBEAN OIL
     Dates: start: 20250207, end: 20250213
  114. AMINO ACIDS\DEXTROSE\ELECTROLYTES NOS\SOYBEAN OIL [Concomitant]
     Active Substance: AMINO ACIDS\DEXTROSE\ELECTROLYTES NOS\SOYBEAN OIL
     Dates: start: 20250208, end: 20250213
  115. AMINO ACIDS\DEXTROSE\ELECTROLYTES NOS\SOYBEAN OIL [Concomitant]
     Active Substance: AMINO ACIDS\DEXTROSE\ELECTROLYTES NOS\SOYBEAN OIL
     Dates: start: 20250209, end: 20250213
  116. AMINO ACIDS\DEXTROSE\ELECTROLYTES NOS\SOYBEAN OIL [Concomitant]
     Active Substance: AMINO ACIDS\DEXTROSE\ELECTROLYTES NOS\SOYBEAN OIL
     Dates: start: 20250210, end: 20250213
  117. AMINO ACIDS\DEXTROSE\ELECTROLYTES NOS\SOYBEAN OIL [Concomitant]
     Active Substance: AMINO ACIDS\DEXTROSE\ELECTROLYTES NOS\SOYBEAN OIL
     Dates: start: 20250211, end: 20250213
  118. AMINO ACIDS\DEXTROSE\ELECTROLYTES NOS\SOYBEAN OIL [Concomitant]
     Active Substance: AMINO ACIDS\DEXTROSE\ELECTROLYTES NOS\SOYBEAN OIL
     Dates: start: 20250212, end: 20250213
  119. AMINO ACIDS\DEXTROSE\ELECTROLYTES NOS\SOYBEAN OIL [Concomitant]
     Active Substance: AMINO ACIDS\DEXTROSE\ELECTROLYTES NOS\SOYBEAN OIL
     Dates: start: 20250213, end: 20250213
  120. XANAX [Concomitant]
     Active Substance: ALPRAZOLAM
     Dates: start: 20250214, end: 20250214
  121. XANAX [Concomitant]
     Active Substance: ALPRAZOLAM
     Dates: start: 20250305, end: 20250319
  122. XANAX [Concomitant]
     Active Substance: ALPRAZOLAM
     Dates: start: 20250306, end: 20250319
  123. XANAX [Concomitant]
     Active Substance: ALPRAZOLAM
     Dates: start: 20250307, end: 20250319
  124. XANAX [Concomitant]
     Active Substance: ALPRAZOLAM
     Dates: start: 20250308, end: 20250319
  125. XANAX [Concomitant]
     Active Substance: ALPRAZOLAM
     Dates: start: 20250310, end: 20250319
  126. XANAX [Concomitant]
     Active Substance: ALPRAZOLAM
     Dates: start: 20250311, end: 20250319
  127. XANAX [Concomitant]
     Active Substance: ALPRAZOLAM
     Dates: start: 20250312, end: 20250319
  128. XANAX [Concomitant]
     Active Substance: ALPRAZOLAM
     Dates: start: 20250313, end: 20250319
  129. XANAX [Concomitant]
     Active Substance: ALPRAZOLAM
     Dates: start: 20250314, end: 20250319
  130. XANAX [Concomitant]
     Active Substance: ALPRAZOLAM
     Dates: start: 20250315, end: 20250319
  131. XANAX [Concomitant]
     Active Substance: ALPRAZOLAM
     Dates: start: 20250316, end: 20250319
  132. XANAX [Concomitant]
     Active Substance: ALPRAZOLAM
     Dates: start: 20250317, end: 20250319
  133. XANAX [Concomitant]
     Active Substance: ALPRAZOLAM
     Dates: start: 20250318, end: 20250319
  134. XANAX [Concomitant]
     Active Substance: ALPRAZOLAM
     Dates: start: 20250319, end: 20250319
  135. XANAX [Concomitant]
     Active Substance: ALPRAZOLAM
     Dates: start: 20250320
  136. LECLEAN [Concomitant]
     Dates: start: 20250205, end: 20250205
  137. CODAEWON S [Concomitant]
     Dates: start: 20250207, end: 20250210
  138. CODAEWON S [Concomitant]
     Dates: start: 20250208, end: 20250210
  139. CODAEWON S [Concomitant]
     Dates: start: 20250209, end: 20250210
  140. CODAEWON S [Concomitant]
     Dates: start: 20250210, end: 20250210
  141. PENIRAMIN [Concomitant]
     Dates: start: 20250204, end: 20250213
  142. PENIRAMIN [Concomitant]
     Dates: start: 20250213, end: 20250213
  143. PENIRAMIN [Concomitant]
     Dates: start: 20250219, end: 20250219
  144. PENIRAMIN [Concomitant]
     Dates: start: 20250304, end: 20250304
  145. PENIRAMIN [Concomitant]
     Dates: start: 20250313, end: 20250319
  146. PENIRAMIN [Concomitant]
     Dates: start: 20250319, end: 20250319
  147. GASTER [Concomitant]
     Active Substance: FAMOTIDINE
     Dates: start: 20250210, end: 20250210
  148. CHLORHEXIDINE GLUCONATE [Concomitant]
     Active Substance: CHLORHEXIDINE GLUCONATE
     Dates: start: 20250202, end: 20250202
  149. MOBINUL [Concomitant]
     Dates: start: 20250205, end: 20250205
  150. HUONS HEPARIN SODIUM [Concomitant]
     Dates: start: 20250204, end: 20250204
  151. ACETAPHEN [Concomitant]
     Dates: start: 20250207, end: 20250209
  152. ACETAPHEN [Concomitant]
     Dates: start: 20250209, end: 20250209
  153. ACETAPHEN [Concomitant]
     Dates: start: 20250304, end: 20250305
  154. ACETAPHEN [Concomitant]
     Dates: start: 20250305, end: 20250305
  155. ACETAPHEN [Concomitant]
     Dates: start: 20250306, end: 20250306
  156. AMBROXOL [Concomitant]
     Active Substance: AMBROXOL
     Dates: start: 20250209, end: 20250212
  157. AMBROXOL [Concomitant]
     Active Substance: AMBROXOL
     Dates: start: 20250210, end: 20250212
  158. AMBROXOL [Concomitant]
     Active Substance: AMBROXOL
     Dates: start: 20250211, end: 20250212
  159. AMBROXOL [Concomitant]
     Active Substance: AMBROXOL
     Dates: start: 20250212, end: 20250212
  160. MACPERAN [METOCLOPRAMIDE] [Concomitant]
     Dates: start: 20250210, end: 20250211
  161. MACPERAN [METOCLOPRAMIDE] [Concomitant]
     Dates: start: 20250211, end: 20250211
  162. MACPERAN [METOCLOPRAMIDE] [Concomitant]
     Dates: start: 20250305, end: 20250305
  163. PALOSET [Concomitant]
     Dates: start: 20250206, end: 20250206
  164. POTASSIUM CHLORIDE [Concomitant]
     Active Substance: POTASSIUM CHLORIDE
     Dates: start: 20250208, end: 20250209
  165. POTASSIUM CHLORIDE [Concomitant]
     Active Substance: POTASSIUM CHLORIDE
     Dates: start: 20250209, end: 20250209
  166. KETOCIN [KETOROLAC TROMETHAMINE] [Concomitant]
     Dates: start: 20250205, end: 20250210
  167. KETOCIN [KETOROLAC TROMETHAMINE] [Concomitant]
     Dates: start: 20250206, end: 20250210
  168. KETOCIN [KETOROLAC TROMETHAMINE] [Concomitant]
     Dates: start: 20250207, end: 20250210
  169. KETOCIN [KETOROLAC TROMETHAMINE] [Concomitant]
     Dates: start: 20250208, end: 20250210
  170. KETOCIN [KETOROLAC TROMETHAMINE] [Concomitant]
     Dates: start: 20250209, end: 20250210
  171. KETOCIN [KETOROLAC TROMETHAMINE] [Concomitant]
     Dates: start: 20250210, end: 20250210
  172. LORAZEPAM [Concomitant]
     Active Substance: LORAZEPAM
     Dates: start: 20250211, end: 20250211
  173. MAXIGESIC [IBUPROFEN;PARACETAMOL] [Concomitant]
     Dates: start: 20250205, end: 20250211
  174. MAXIGESIC [IBUPROFEN;PARACETAMOL] [Concomitant]
     Dates: start: 20250210, end: 20250211
  175. MAXIGESIC [IBUPROFEN;PARACETAMOL] [Concomitant]
     Dates: start: 20250211, end: 20250211
  176. ULTIFEN [Concomitant]
     Dates: start: 20250205, end: 20250205
  177. BC FENTANYL CITRATE [Concomitant]
     Dates: start: 20250205, end: 20250205
  178. MEPERIDINE HYDROCHLORIDE [Concomitant]
     Active Substance: MEPERIDINE HYDROCHLORIDE
     Dates: start: 20250213, end: 20250213
  179. SODIUM CHLORIDE [Concomitant]
     Active Substance: SODIUM CHLORIDE
     Dates: start: 20250203, end: 20250213
  180. SODIUM CHLORIDE [Concomitant]
     Active Substance: SODIUM CHLORIDE
     Dates: start: 20250204, end: 20250213
  181. SODIUM CHLORIDE [Concomitant]
     Active Substance: SODIUM CHLORIDE
     Dates: start: 20250205, end: 20250213
  182. SODIUM CHLORIDE [Concomitant]
     Active Substance: SODIUM CHLORIDE
     Dates: start: 20250206, end: 20250213
  183. SODIUM CHLORIDE [Concomitant]
     Active Substance: SODIUM CHLORIDE
     Dates: start: 20250213, end: 20250213
  184. SODIUM CHLORIDE [Concomitant]
     Active Substance: SODIUM CHLORIDE
     Dates: start: 20250204, end: 20250205
  185. SODIUM CHLORIDE [Concomitant]
     Active Substance: SODIUM CHLORIDE
     Dates: start: 20250205, end: 20250205
  186. SODIUM CHLORIDE [Concomitant]
     Active Substance: SODIUM CHLORIDE
     Dates: start: 20250304, end: 20250305
  187. SODIUM CHLORIDE [Concomitant]
     Active Substance: SODIUM CHLORIDE
     Dates: start: 20250305, end: 20250305
  188. PHENYLEPHRINE HYDROCHLORIDE [Concomitant]
     Active Substance: PHENYLEPHRINE HYDROCHLORIDE
     Dates: start: 20250205, end: 20250205
  189. PALONOSETRON HYDROCHLORIDE [Concomitant]
     Active Substance: PALONOSETRON HYDROCHLORIDE
     Dates: start: 20250205, end: 20250205
  190. PLASMA SOLUTION A [Concomitant]
     Dates: start: 20250203, end: 20250210
  191. PLASMA SOLUTION A [Concomitant]
     Dates: start: 20250205, end: 20250210
  192. PLASMA SOLUTION A [Concomitant]
     Dates: start: 20250207, end: 20250210
  193. PLASMA SOLUTION A [Concomitant]
     Dates: start: 20250208, end: 20250210
  194. PLASMA SOLUTION A [Concomitant]
     Dates: start: 20250209, end: 20250210
  195. PLASMA SOLUTION A [Concomitant]
     Dates: start: 20250210, end: 20250210
  196. PLASMA SOLUTION A [Concomitant]
     Dates: start: 20250219, end: 20250219
  197. PHOSTEN [Concomitant]
     Dates: start: 20250208, end: 20250208
  198. ROCURONIUM BROMIDE [Concomitant]
     Active Substance: ROCURONIUM BROMIDE
     Dates: start: 20250205, end: 20250205
  199. RAMOSETRON HYDROCHLORIDE [Concomitant]
     Active Substance: RAMOSETRON HYDROCHLORIDE
     Dates: start: 20250205, end: 20250205
  200. PACETIN [Concomitant]
     Dates: start: 20250205, end: 20250205
  201. TAZOLACTAM [Concomitant]
     Dates: start: 20250213, end: 20250217
  202. TAZOLACTAM [Concomitant]
     Dates: start: 20250214, end: 20250217
  203. TAZOLACTAM [Concomitant]
     Dates: start: 20250215, end: 20250217
  204. TAZOLACTAM [Concomitant]
     Dates: start: 20250216, end: 20250217
  205. TAZOLACTAM [Concomitant]
     Dates: start: 20250217, end: 20250217
  206. TAZOLACTAM [Concomitant]
     Dates: start: 20250218, end: 20250219
  207. TAZOLACTAM [Concomitant]
     Dates: start: 20250219, end: 20250219
  208. TAZOLACTAM [Concomitant]
     Dates: start: 20250304, end: 20250306
  209. TAZOLACTAM [Concomitant]
     Dates: start: 20250305, end: 20250306
  210. TAZOLACTAM [Concomitant]
     Dates: start: 20250304, end: 20250319
  211. TAZOLACTAM [Concomitant]
     Dates: start: 20250305, end: 20250319
  212. TAZOLACTAM [Concomitant]
     Dates: start: 20250306, end: 20250319
  213. TAZOLACTAM [Concomitant]
     Dates: start: 20250307, end: 20250319
  214. TAZOLACTAM [Concomitant]
     Dates: start: 20250308, end: 20250319
  215. TAZOLACTAM [Concomitant]
     Dates: start: 20250309, end: 20250319
  216. TAZOLACTAM [Concomitant]
     Dates: start: 20250310, end: 20250319
  217. TAZOLACTAM [Concomitant]
     Dates: start: 20250311, end: 20250319
  218. TAZOLACTAM [Concomitant]
     Dates: start: 20250312, end: 20250319
  219. TAZOLACTAM [Concomitant]
     Dates: start: 20250313, end: 20250319
  220. TAZOLACTAM [Concomitant]
     Dates: start: 20250314, end: 20250319
  221. TAZOLACTAM [Concomitant]
     Dates: start: 20250315, end: 20250319
  222. TAZOLACTAM [Concomitant]
     Dates: start: 20250316, end: 20250319
  223. TAZOLACTAM [Concomitant]
     Dates: start: 20250317, end: 20250319
  224. TAZOLACTAM [Concomitant]
     Dates: start: 20250318, end: 20250319
  225. TAZOLACTAM [Concomitant]
     Dates: start: 20250319, end: 20250319
  226. ZOLPIDEM TARTRATE [Concomitant]
     Active Substance: ZOLPIDEM TARTRATE
     Dates: start: 20250213, end: 20250217
  227. ZOLPIDEM TARTRATE [Concomitant]
     Active Substance: ZOLPIDEM TARTRATE
     Dates: start: 20250215, end: 20250217
  228. ZOLPIDEM TARTRATE [Concomitant]
     Active Substance: ZOLPIDEM TARTRATE
     Dates: start: 20250216, end: 20250217
  229. ZOLPIDEM TARTRATE [Concomitant]
     Active Substance: ZOLPIDEM TARTRATE
     Dates: start: 20250217, end: 20250217
  230. ZOLPIDEM TARTRATE [Concomitant]
     Active Substance: ZOLPIDEM TARTRATE
     Dates: start: 20250218, end: 20250219
  231. ZOLPIDEM TARTRATE [Concomitant]
     Active Substance: ZOLPIDEM TARTRATE
     Dates: start: 20250219, end: 20250219
  232. ZOLPIDEM TARTRATE [Concomitant]
     Active Substance: ZOLPIDEM TARTRATE
     Dates: start: 20250220, end: 20250222
  233. ZOLPIDEM TARTRATE [Concomitant]
     Active Substance: ZOLPIDEM TARTRATE
     Dates: start: 20250305, end: 20250316
  234. ZOLPIDEM TARTRATE [Concomitant]
     Active Substance: ZOLPIDEM TARTRATE
     Dates: start: 20250307, end: 20250316
  235. ZOLPIDEM TARTRATE [Concomitant]
     Active Substance: ZOLPIDEM TARTRATE
     Dates: start: 20250308, end: 20250316
  236. ZOLPIDEM TARTRATE [Concomitant]
     Active Substance: ZOLPIDEM TARTRATE
     Dates: start: 20250310, end: 20250316
  237. ZOLPIDEM TARTRATE [Concomitant]
     Active Substance: ZOLPIDEM TARTRATE
     Dates: start: 20250311, end: 20250316
  238. ZOLPIDEM TARTRATE [Concomitant]
     Active Substance: ZOLPIDEM TARTRATE
     Dates: start: 20250312, end: 20250316
  239. ZOLPIDEM TARTRATE [Concomitant]
     Active Substance: ZOLPIDEM TARTRATE
     Dates: start: 20250313, end: 20250316
  240. ZOLPIDEM TARTRATE [Concomitant]
     Active Substance: ZOLPIDEM TARTRATE
     Dates: start: 20250314, end: 20250316
  241. ZOLPIDEM TARTRATE [Concomitant]
     Active Substance: ZOLPIDEM TARTRATE
     Dates: start: 20250315, end: 20250316
  242. ZOLPIDEM TARTRATE [Concomitant]
     Active Substance: ZOLPIDEM TARTRATE
     Dates: start: 20250316, end: 20250316
  243. ACETYLCYSTEINE [Concomitant]
     Active Substance: ACETYLCYSTEINE
     Dates: start: 20250219, end: 20250219
  244. MOROXACIN [Concomitant]
     Dates: start: 20250220, end: 20250226
  245. TRAMADOL HCL [Concomitant]
     Active Substance: TRAMADOL HYDROCHLORIDE
     Dates: start: 20250304, end: 20250304
  246. AMINO ACIDS\DEXTROSE\ELECTROLYTES NOS\SOYBEAN OIL\VITAMINS [Concomitant]
     Active Substance: AMINO ACIDS\DEXTROSE\ELECTROLYTES NOS\SOYBEAN OIL\VITAMINS
     Dates: start: 20250311, end: 20250311
  247. CYCIN [CIPROFLOXACIN HYDROCHLORIDE] [Concomitant]
     Dates: start: 20250320

REACTIONS (5)
  - Crohn^s disease [Recovered/Resolved]
  - Crohn^s disease [Recovered/Resolved]
  - Abdominal abscess [Recovered/Resolved]
  - Drug ineffective [Unknown]
  - Loss of therapeutic response [Unknown]

NARRATIVE: CASE EVENT DATE: 20231228
